FAERS Safety Report 17879449 (Version 2)
Quarter: 2021Q1

REPORT INFORMATION
  Report Type: Spontaneous
  Country: US (occurrence: US)
  Receive Date: 20200610
  Receipt Date: 20210131
  Transmission Date: 20210419
  Serious: No
  Sender: FDA-Public Use
  Company Number: US-GILEAD-2020-0470785

PATIENT

DRUGS (1)
  1. STRIBILD [Suspect]
     Active Substance: COBICISTAT\ELVITEGRAVIR\EMTRICITABINE\TENOFOVIR DISOPROXIL FUMARATE
     Indication: PRODUCT USED FOR UNKNOWN INDICATION
     Dosage: UNK
     Route: 048
     Dates: start: 2014

REACTIONS (2)
  - Tooth loss [Unknown]
  - Bone density decreased [Unknown]
